FAERS Safety Report 23642253 (Version 1)
Quarter: 2024Q1

REPORT INFORMATION
  Report Type: Spontaneous
  Country: US (occurrence: None)
  Receive Date: 20240315
  Receipt Date: 20240315
  Transmission Date: 20240409
  Serious: Yes (Hospitalization)
  Sender: FDA-Public Use
  Company Number: None

PATIENT
  Sex: Female

DRUGS (10)
  1. DIMETHYL FUMARATE [Suspect]
     Active Substance: DIMETHYL FUMARATE
     Indication: Multiple sclerosis
     Route: 048
     Dates: start: 20201105
  2. BUPROPION HYDROCHLORIDE [Concomitant]
     Active Substance: BUPROPION HYDROCHLORIDE
  3. DIAZEPAM  INJ 5MG/ML [Concomitant]
  4. DIPHENHYDRAM CAP 50MG [Concomitant]
  5. DULOXETINE CAP 60MG [Concomitant]
  6. FUROSEMIDE SOL 40MG/5ML [Concomitant]
  7. METFORMIN TAB 750MG ER [Concomitant]
  8. PROGESTERONE [Concomitant]
     Active Substance: PROGESTERONE
  9. RIZATRIPTAN TAB 5MG ODT [Concomitant]
  10. TIZANIDINE CAP 6MG [Concomitant]

REACTIONS (2)
  - Sepsis [None]
  - Therapy cessation [None]
